FAERS Safety Report 20767138 (Version 2)
Quarter: 2022Q2

REPORT INFORMATION
  Report Type: Spontaneous
  Country: US (occurrence: US)
  Receive Date: 20220429
  Receipt Date: 20220502
  Transmission Date: 20220721
  Serious: Yes (Hospitalization)
  Sender: FDA-Public Use
  Company Number: US-BRISTOL-MYERS SQUIBB COMPANY-2022-023700

PATIENT
  Age: 69 Year
  Sex: Male
  Weight: 143.34 kg

DRUGS (1)
  1. REVLIMID [Suspect]
     Active Substance: LENALIDOMIDE
     Indication: Plasma cell myeloma
     Dosage: DAILY FOR 3 WEEKS AND 1 WEEK OFF
     Route: 048

REACTIONS (2)
  - Urinary tract infection [Unknown]
  - Prescribed overdose [Unknown]
